FAERS Safety Report 5888276-5 (Version None)
Quarter: 2008Q3

REPORT INFORMATION
  Report Type: 
  Country: None (occurrence: None)
  Receive Date: 20080917
  Receipt Date: 20080908
  Transmission Date: 20090109
  Serious: Yes (Hospitalization)
  Sender: FDA-Public Use
  Company Number: 1000000560

PATIENT
  Age: 5 Year
  Sex: Male

DRUGS (3)
  1. THEOPHYLLINE ELIXIR LIQUID [Suspect]
     Dosage: 16 MG/KG/DAY, ORAL
     Route: 048
  2. PRANLUKAST [Concomitant]
  3. TULOBUTEROL HYDROCHLORIDE [Concomitant]

REACTIONS (18)
  - ABDOMINAL PAIN [None]
  - BODY TEMPERATURE DECREASED [None]
  - COUGH [None]
  - CYANOSIS [None]
  - DISORIENTATION [None]
  - GRAND MAL CONVULSION [None]
  - HYPOPNOEA [None]
  - HYPOREFLEXIA [None]
  - HYPOVENTILATION [None]
  - INCONTINENCE [None]
  - OXYGEN SATURATION DECREASED [None]
  - PUPILLARY REFLEX IMPAIRED [None]
  - RESPIRATORY ACIDOSIS [None]
  - STATUS EPILEPTICUS [None]
  - TACHYCARDIA [None]
  - UNRESPONSIVE TO STIMULI [None]
  - VOMITING [None]
  - WHEEZING [None]
